FAERS Safety Report 6779714-4 (Version None)
Quarter: 2010Q2

REPORT INFORMATION
  Report Type: 
  Country: None (occurrence: None)
  Receive Date: 20100618
  Receipt Date: 20100614
  Transmission Date: 20101027
  Serious: Yes (Death, Other)
  Sender: FDA-Public Use
  Company Number: PHHY2010US12644

PATIENT
  Sex: Female

DRUGS (8)
  1. EXJADE [Suspect]
     Indication: IRON OVERLOAD
     Dosage: 500 MG, DAILY
     Route: 048
     Dates: start: 20100210
  2. EXJADE [Suspect]
     Dosage: 500 MG EVERY OTHER DAY.
     Route: 048
     Dates: start: 20100308, end: 20100315
  3. PROCRIT [Concomitant]
     Indication: MYELODYSPLASTIC SYNDROME
     Dosage: 60000 WEEKLY
     Route: 058
  4. ATENOLOL [Concomitant]
     Indication: HYPERTENSION
     Dosage: 25 MG,  DAILY
     Route: 048
  5. LASIX [Concomitant]
     Indication: OEDEMA PERIPHERAL
     Dosage: 40 MG DAILY
     Route: 048
  6. FLOMAX [Concomitant]
     Indication: OEDEMA PERIPHERAL
  7. DIFLUCAN [Concomitant]
     Dosage: 100 MG DAILY
     Route: 048
  8. RED BLOOD CELLS TRANSFUSION [Concomitant]
     Dosage: UNK

REACTIONS (7)
  - DIARRHOEA [None]
  - FLUID RETENTION [None]
  - HEPATIC FAILURE [None]
  - LEUKAEMIA [None]
  - MALAISE [None]
  - MALIGNANT NEOPLASM PROGRESSION [None]
  - OEDEMA PERIPHERAL [None]
